FAERS Safety Report 19784513 (Version 1)
Quarter: 2021Q3

REPORT INFORMATION
  Report Type: Report from Study
  Country: RU (occurrence: RU)
  Receive Date: 20210903
  Receipt Date: 20210903
  Transmission Date: 20211014
  Serious: Yes (Other)
  Sender: FDA-Public Use
  Company Number: RU-NOVOPROD-836758

PATIENT
  Age: 71 Year
  Sex: Female
  Weight: 97 kg

DRUGS (1)
  1. SEMAGLUTIDE B 1.34 MG/ML PDS290 [Suspect]
     Active Substance: SEMAGLUTIDE
     Indication: TYPE 2 DIABETES MELLITUS
     Dosage: 1.0,MG,ONCE PER WEEK
     Route: 058
     Dates: start: 20190812

REACTIONS (1)
  - Detachment of retinal pigment epithelium [Not Recovered/Not Resolved]

NARRATIVE: CASE EVENT DATE: 20210804
